FAERS Safety Report 8810296 (Version 2)
Quarter: 2013Q1

REPORT INFORMATION
  Report Type: Spontaneous
  Country: US (occurrence: US)
  Receive Date: 20120926
  Receipt Date: 20130218
  Transmission Date: 20140127
  Serious: Yes (Hospitalization, Other)
  Sender: FDA-Public Use
  Company Number: US-009507513-1103USA00838

PATIENT
  Sex: Male
  Weight: 151.93 kg

DRUGS (2)
  1. FOSAMAX [Suspect]
     Indication: OSTEOPOROSIS
     Dosage: 10 MG, UNK
     Route: 048
     Dates: start: 19971125, end: 19981221
  2. FOSAMAX [Suspect]
     Route: 048
     Dates: start: 200802

REACTIONS (9)
  - Hip fracture [Unknown]
  - Open reduction of fracture [Unknown]
  - Basal cell carcinoma [Not Recovered/Not Resolved]
  - Weight increased [Unknown]
  - Bipolar disorder [Unknown]
  - Hypertension [Unknown]
  - Cerebrovascular accident [Unknown]
  - Fall [Unknown]
  - Gastrooesophageal reflux disease [Unknown]
